FAERS Safety Report 21521990 (Version 1)
Quarter: 2022Q4

REPORT INFORMATION
  Report Type: Report from Study
  Country: US (occurrence: US)
  Receive Date: 20221028
  Receipt Date: 20221028
  Transmission Date: 20230112
  Serious: No
  Sender: FDA-Public Use
  Company Number: US-ABBVIE-4130536

PATIENT
  Age: 52 Year
  Sex: Female

DRUGS (2)
  1. HUMIRA [Suspect]
     Active Substance: ADALIMUMAB
     Indication: Uveitis
     Route: 058
     Dates: start: 20220831
  2. HUMIRA [Suspect]
     Active Substance: ADALIMUMAB
     Indication: Rheumatoid arthritis

REACTIONS (2)
  - Pain [Recovering/Resolving]
  - Injection site bruising [Recovered/Resolved]

NARRATIVE: CASE EVENT DATE: 20220910
